FAERS Safety Report 9219831 (Version 1)
Quarter: 2013Q1

REPORT INFORMATION
  Report Type: Spontaneous
  Country: US (occurrence: None)
  Receive Date: 20120828
  Receipt Date: 20120828
  Transmission Date: 20140127
  Serious: Yes (Other)
  Sender: FDA-Public Use
  Company Number: 2012BAX002594

PATIENT
  Sex: Female

DRUGS (4)
  1. GAMMAGARD LIQUID (IMMUNOGLOBULIN, NORMAL HUMAN) (SOLUTION FOR INFUSION) [Suspect]
  2. SYNTHROID (LEVOTHYROXINE SODIUM) [Concomitant]
  3. LEXAPRO (ESCITALOPRAM OXALATE) [Concomitant]
  4. NASONEX (MOMETASONE FUROATE) [Concomitant]

REACTIONS (1)
  - Anaphylactic reaction [None]
